FAERS Safety Report 13123492 (Version 2)
Quarter: 2017Q1

REPORT INFORMATION
  Report Type: Report from Study
  Country: US (occurrence: US)
  Receive Date: 20170117
  Receipt Date: 20170210
  Transmission Date: 20170428
  Serious: Yes (Other)
  Sender: FDA-Public Use
  Company Number: US-GILEAD-2017-0253462

PATIENT
  Age: 86 Year
  Sex: Female

DRUGS (1)
  1. RANOLAZINE [Suspect]
     Active Substance: RANOLAZINE
     Indication: ANGINA PECTORIS
     Dosage: 500 MG, UNK
     Route: 048

REACTIONS (6)
  - Left ventricular dysfunction [Unknown]
  - Cardiac failure [Unknown]
  - Chest pain [Unknown]
  - Coronary artery disease [Unknown]
  - Dyspnoea [Unknown]
  - Myocardial infarction [Unknown]
